FAERS Safety Report 9298463 (Version 1)
Quarter: 2013Q2

REPORT INFORMATION
  Report Type: Spontaneous
  Country: US (occurrence: US)
  Receive Date: 20130520
  Receipt Date: 20130520
  Transmission Date: 20140414
  Serious: Yes (Hospitalization)
  Sender: FDA-Public Use
  Company Number: US-B.I. PHARMACEUTICALS,INC./RIDGEFIELD-2013-BI-13334BP

PATIENT
  Age: 69 Year
  Sex: Female

DRUGS (2)
  1. SPIRIVA [Suspect]
     Indication: CHRONIC OBSTRUCTIVE PULMONARY DISEASE
     Dosage: 18 MG
     Route: 055
  2. RECLAST [Concomitant]
     Indication: OSTEOPOROSIS
     Dosage: (INTRAVENOUS)
     Route: 030

REACTIONS (6)
  - Muscle tightness [Recovered/Resolved]
  - Blood sodium decreased [Recovered/Resolved]
  - Pyrexia [Recovered/Resolved]
  - Eye pruritus [Recovered/Resolved]
  - Dysphagia [Recovered/Resolved]
  - Incorrect route of drug administration [Recovered/Resolved]
